FAERS Safety Report 10009599 (Version 2)
Quarter: 2014Q1

REPORT INFORMATION
  Report Type: Spontaneous
  Country: US (occurrence: US)
  Receive Date: 20140312
  Receipt Date: 20140312
  Transmission Date: 20141002
  Serious: No
  Sender: FDA-Public Use
  Company Number: US-INCYTE CORPORATION-2012IN001769

PATIENT
  Age: 80 Year
  Sex: Female

DRUGS (4)
  1. JAKAFI [Suspect]
     Indication: POLYCYTHAEMIA VERA
     Dosage: 10 MG, BID
     Route: 048
     Dates: end: 201209
  2. JAKAFI [Suspect]
     Dosage: 10 MG, BID, ALTERNATING WITH 10 MG, QD
     Route: 048
     Dates: start: 201209, end: 201209
  3. JAKAFI [Suspect]
     Dosage: 15 MG, BID
     Route: 048
     Dates: end: 201209
  4. JAKAFI [Suspect]
     Dosage: 15 MG, BID, QOD ALTERNATING WITH 15 MG, QD
     Route: 048
     Dates: start: 201209

REACTIONS (2)
  - Fatigue [Unknown]
  - Dyspnoea [Not Recovered/Not Resolved]
